FAERS Safety Report 25035794 (Version 1)
Quarter: 2025Q1

REPORT INFORMATION
  Report Type: Spontaneous
  Country: US (occurrence: None)
  Receive Date: 20250304
  Receipt Date: 20250304
  Transmission Date: 20250409
  Serious: Yes (Hospitalization)
  Sender: FDA-CTU
  Company Number: None

PATIENT
  Age: 67 Year
  Sex: Male
  Weight: 74.4 kg

DRUGS (3)
  1. CISPLATIN [Suspect]
     Active Substance: CISPLATIN
  2. GEMCITABINE HYDROCHLORIDE [Suspect]
     Active Substance: GEMCITABINE HYDROCHLORIDE
  3. NEULASTA [Suspect]
     Active Substance: PEGFILGRASTIM

REACTIONS (4)
  - Pulmonary embolism [None]
  - Palpitations [None]
  - Haemoglobin decreased [None]
  - Transfusion [None]

NARRATIVE: CASE EVENT DATE: 20241203
